FAERS Safety Report 4980092-1 (Version None)
Quarter: 2006Q2

REPORT INFORMATION
  Report Type: 
  Country: None (occurrence: None)
  Receive Date: 20060421
  Receipt Date: 20060104
  Transmission Date: 20061013
  Serious: Yes (Death, Other)
  Sender: FDA-Public Use
  Company Number: US-MERCK-0601USA00344

PATIENT
  Age: 77 Year
  Sex: Male
  Weight: 85 kg

DRUGS (7)
  1. VIOXX [Suspect]
     Indication: PAIN
     Route: 048
     Dates: start: 20020214, end: 20031122
  2. VIOXX [Suspect]
     Route: 048
     Dates: start: 20020214, end: 20031122
  3. CELEBREX [Concomitant]
     Route: 065
  4. PHENYTOIN [Concomitant]
     Route: 065
  5. LIPITOR [Concomitant]
     Route: 065
     Dates: start: 20010502, end: 20031123
  6. PRILOSEC [Concomitant]
     Route: 065
  7. NORVASC [Concomitant]
     Route: 065

REACTIONS (2)
  - ACUTE CORONARY SYNDROME [None]
  - MYOCARDIAL INFARCTION [None]
